FAERS Safety Report 10589980 (Version 1)
Quarter: 2014Q4

REPORT INFORMATION
  Report Type: Spontaneous
  Country: US (occurrence: None)
  Receive Date: 20141117
  Receipt Date: 20141117
  Transmission Date: 20150529
  Serious: Yes (Disabling, Other)
  Sender: FDA-Public Use
  Company Number: None

PATIENT
  Age: 6 Month
  Sex: Male
  Weight: 9.07 kg

DRUGS (2)
  1. BABY TEETHING [Suspect]
     Active Substance: ARABICA COFFEE BEAN\ATROPA BELLADONNA\CALCIUM PHOSPHATE\CHAMOMILE
     Indication: IRRITABILITY
     Dosage: 1-2 DISSOLVABLE PILLS A DAY?ONCE DAILY?TAKEN UNDER THE TONGUE
     Dates: start: 20140924, end: 20141101
  2. BABY TEETHING [Suspect]
     Active Substance: ARABICA COFFEE BEAN\ATROPA BELLADONNA\CALCIUM PHOSPHATE\CHAMOMILE
     Indication: TEETHING
     Dosage: 1-2 DISSOLVABLE PILLS A DAY?ONCE DAILY?TAKEN UNDER THE TONGUE
     Dates: start: 20140924, end: 20141101

REACTIONS (6)
  - Seizure [None]
  - Pyrexia [None]
  - Vomiting [None]
  - Anaemia [None]
  - Urinary retention [None]
  - Dry skin [None]

NARRATIVE: CASE EVENT DATE: 20140926
